FAERS Safety Report 9424134 (Version 1)
Quarter: 2013Q3

REPORT INFORMATION
  Report Type: Report from Study
  Country: US (occurrence: US)
  Receive Date: 20130729
  Receipt Date: 20130729
  Transmission Date: 20140515
  Serious: Yes (Hospitalization)
  Sender: FDA-Public Use
  Company Number: US-ROCHE-1252413

PATIENT
  Age: 52 Year
  Sex: Male
  Weight: 59.86 kg

DRUGS (5)
  1. MYCOPHENOLATE MOFETIL [Suspect]
     Indication: RENAL TRANSPLANT
     Route: 048
     Dates: start: 20101223, end: 20110109
  2. MYCOPHENOLATE MOFETIL [Suspect]
     Route: 048
     Dates: start: 20110110, end: 20110110
  3. MYCOPHENOLATE MOFETIL [Suspect]
     Route: 048
     Dates: start: 20110111
  4. PROGRAF [Concomitant]
     Route: 065
     Dates: start: 20101223, end: 20110110
  5. LANTUS [Concomitant]

REACTIONS (2)
  - Erosive oesophagitis [Recovered/Resolved]
  - Hypotension [Recovered/Resolved]
